FAERS Safety Report 5734896-8 (Version None)
Quarter: 2008Q2

REPORT INFORMATION
  Report Type: 
  Country: None (occurrence: None)
  Receive Date: 20080508
  Receipt Date: 20080508
  Transmission Date: 20081010
  Serious: Yes (Other)
  Sender: FDA-Public Use
  Company Number: None

PATIENT
  Age: 91 Year
  Sex: Female
  Weight: 61.6892 kg

DRUGS (1)
  1. DIGITEK 125 MCG ACTAVIS TOTOWA [Suspect]
     Indication: ATRIAL FIBRILLATION
     Dates: start: 20080411, end: 20080507

REACTIONS (4)
  - ASTHENIA [None]
  - GENERAL PHYSICAL CONDITION ABNORMAL [None]
  - MALAISE [None]
  - PHARMACEUTICAL PRODUCT COMPLAINT [None]
